FAERS Safety Report 16785124 (Version 2)
Quarter: 2019Q3

REPORT INFORMATION
  Report Type: Spontaneous
  Country: CO (occurrence: CO)
  Receive Date: 20190909
  Receipt Date: 20190910
  Transmission Date: 20191005
  Serious: Yes (Other)
  Sender: FDA-Public Use
  Company Number: CO-BAYER-2019-164308

PATIENT
  Age: 15 Year
  Sex: Male
  Weight: 55 kg

DRUGS (1)
  1. ULTRAVIST? 300 [Suspect]
     Active Substance: IOPROMIDE
     Indication: COMPUTERISED TOMOGRAM ABNORMAL
     Dosage: 55 UNK, ONCE
     Route: 042
     Dates: start: 20190305, end: 20190305

REACTIONS (4)
  - Blood pressure abnormal [Not Recovered/Not Resolved]
  - Dependence on oxygen therapy [Not Recovered/Not Resolved]
  - Rash papular [Unknown]
  - Skin mass [Unknown]

NARRATIVE: CASE EVENT DATE: 20190305
